FAERS Safety Report 20070497 (Version 1)
Quarter: 2021Q4

REPORT INFORMATION
  Report Type: Report from Study
  Country: CA (occurrence: CA)
  Receive Date: 20211115
  Receipt Date: 20211115
  Transmission Date: 20220303
  Serious: Yes (Other)
  Sender: FDA-Public Use
  Company Number: CA-NOVARTISPH-PHHY2019CA008650

PATIENT
  Sex: Male

DRUGS (2)
  1. GILENYA [Suspect]
     Active Substance: FINGOLIMOD HYDROCHLORIDE
     Indication: Relapsing-remitting multiple sclerosis
     Dosage: UNK
     Route: 048
     Dates: start: 20140205
  2. AMANTADINE [Concomitant]
     Active Substance: AMANTADINE
     Indication: Product used for unknown indication
     Route: 065

REACTIONS (19)
  - Multiple sclerosis relapse [Not Recovered/Not Resolved]
  - Hypoaesthesia [Not Recovered/Not Resolved]
  - Dizziness [Not Recovered/Not Resolved]
  - Balance disorder [Not Recovered/Not Resolved]
  - Visual impairment [Not Recovered/Not Resolved]
  - Hemiparesis [Unknown]
  - Weight decreased [Unknown]
  - Productive cough [Unknown]
  - Micturition urgency [Unknown]
  - Urinary incontinence [Unknown]
  - Fatigue [Unknown]
  - Dysstasia [Unknown]
  - Paraesthesia [Unknown]
  - Back pain [Unknown]
  - Depression [Unknown]
  - Aggression [Recovered/Resolved]
  - Irritability [Recovered/Resolved]
  - Anxiety [Unknown]
  - Aggression [Unknown]
